FAERS Safety Report 5501627-6 (Version None)
Quarter: 2007Q4

REPORT INFORMATION
  Report Type: 
  Country: None (occurrence: None)
  Receive Date: 20071030
  Receipt Date: 20071019
  Transmission Date: 20080405
  Serious: Yes (Other)
  Sender: FDA-Public Use
  Company Number: CA-JNJFOC-20071005267

PATIENT
  Sex: Female
  Weight: 81 kg

DRUGS (8)
  1. REMICADE [Suspect]
     Route: 042
  2. REMICADE [Suspect]
     Route: 042
  3. REMICADE [Suspect]
     Route: 042
  4. REMICADE [Suspect]
     Route: 042
  5. REMICADE [Suspect]
     Route: 042
  6. REMICADE [Suspect]
     Indication: PSORIATIC ARTHROPATHY
     Route: 042
  7. SMOKING CESSATION PATCH [Concomitant]
  8. ZOLOFT [Concomitant]

REACTIONS (3)
  - DRUG INEFFECTIVE [None]
  - NASAL NEOPLASM [None]
  - OROPHARYNGEAL NEOPLASM [None]
